FAERS Safety Report 4534078-1 (Version None)
Quarter: 2004Q4

REPORT INFORMATION
  Report Type: 
  Country: None (occurrence: None)
  Receive Date: 20041214
  Receipt Date: 20040831
  Transmission Date: 20050328
  Serious: No
  Sender: FDA-Public Use
  Company Number: USA040876989

PATIENT
  Age: 78 Year
  Sex: Male

DRUGS (4)
  1. CIALIS [Suspect]
     Dosage: 20 MG
  2. FUROSEMIDE [Concomitant]
  3. TERAZOSINE [Concomitant]
  4. VASOTEC [Concomitant]

REACTIONS (1)
  - DIZZINESS [None]
